FAERS Safety Report 5963798-7 (Version None)
Quarter: 2008Q4

REPORT INFORMATION
  Report Type: 
  Country: None (occurrence: None)
  Receive Date: 20081121
  Receipt Date: 20081121
  Transmission Date: 20090506
  Serious: Yes (Hospitalization)
  Sender: FDA-Public Use
  Company Number: None

PATIENT
  Sex: Female

DRUGS (3)
  1. WARFARIN SODIUM [Suspect]
     Indication: DEEP VEIN THROMBOSIS
     Dosage: DAILY (5MG)
  2. COZAAR [Concomitant]
  3. NORVASC [Concomitant]

REACTIONS (2)
  - FAECES DISCOLOURED [None]
  - INTERNATIONAL NORMALISED RATIO INCREASED [None]
